FAERS Safety Report 6782262-9 (Version None)
Quarter: 2010Q2

REPORT INFORMATION
  Report Type: 
  Country: None (occurrence: None)
  Receive Date: 20100621
  Receipt Date: 20100611
  Transmission Date: 20101027
  Serious: Yes (Other)
  Sender: FDA-Public Use
  Company Number: US-JNJFOC-20100601527

PATIENT
  Age: 7 Year
  Sex: Female

DRUGS (2)
  1. CHILDREN'S TYLENOL PLUS COLD [Suspect]
     Indication: INFLUENZA
  2. CHILDREN'S TYLENOL PLUS COLD [Suspect]
     Indication: PYREXIA

REACTIONS (2)
  - PRODUCT QUALITY ISSUE [None]
  - TONSILLITIS [None]
